FAERS Safety Report 6111619-4 (Version None)
Quarter: 2009Q1

REPORT INFORMATION
  Report Type: 
  Country: None (occurrence: None)
  Receive Date: 20090310
  Receipt Date: 20090310
  Transmission Date: 20090719
  Serious: Yes (Hospitalization)
  Sender: FDA-Public Use
  Company Number: None

PATIENT
  Age: 68 Year
  Sex: Male
  Weight: 52.3 kg

DRUGS (9)
  1. SEROQUEL [Suspect]
     Indication: DEMENTIA
     Dosage: 12.5 MG PO QHS
     Route: 048
     Dates: start: 20070801
  2. SEROQUEL [Suspect]
     Indication: PSYCHOTIC DISORDER
     Dosage: 12.5 MG PO QHS
     Route: 048
     Dates: start: 20070801
  3. AMLODIPINE BESYLATE [Concomitant]
  4. ASPIRIN [Concomitant]
  5. CITALOPRAM HYDROBROMIDE [Concomitant]
  6. MEGESTROL ACETATE [Concomitant]
  7. METOPROLOL TARTRATE [Concomitant]
  8. NITROGLYCERIN [Concomitant]
  9. TRAZODONE HCL [Concomitant]

REACTIONS (3)
  - DIVERTICULUM INTESTINAL [None]
  - INTESTINAL ISCHAEMIA [None]
  - VOLVULUS OF SMALL BOWEL [None]
